FAERS Safety Report 23192740 (Version 1)
Quarter: 2023Q4

REPORT INFORMATION
  Report Type: Spontaneous
  Country: US (occurrence: US)
  Receive Date: 20231116
  Receipt Date: 20231116
  Transmission Date: 20240110
  Serious: No
  Sender: FDA-Public Use
  Company Number: US-SA-SAC20231113000835

PATIENT
  Sex: Female

DRUGS (2)
  1. DUPIXENT [Suspect]
     Active Substance: DUPILUMAB
     Indication: Dermatitis atopic
     Dosage: 300 MG; EVERY 2 WEEKS
     Route: 058
     Dates: start: 20200925, end: 202308
  2. DUPIXENT [Suspect]
     Active Substance: DUPILUMAB
     Dosage: 600 MG
     Route: 058
     Dates: start: 202309

REACTIONS (1)
  - Dermatitis atopic [Unknown]
